FAERS Safety Report 5505367-9 (Version None)
Quarter: 2007Q4

REPORT INFORMATION
  Report Type: 
  Country: None (occurrence: None)
  Receive Date: 20071102
  Receipt Date: 20071025
  Transmission Date: 20080405
  Serious: Yes (Hospitalization)
  Sender: FDA-Public Use
  Company Number: AU-JNJFOC-20071004698

PATIENT
  Age: 33 Year
  Sex: Male

DRUGS (1)
  1. RISPERDAL CONSTA [Suspect]
     Indication: DRUG USE FOR UNKNOWN INDICATION
     Dosage: FOR 6 MONTHS
     Route: 030

REACTIONS (7)
  - ABDOMINAL DISTENSION [None]
  - APPENDICITIS [None]
  - BODY TEMPERATURE FLUCTUATION [None]
  - GASTRITIS [None]
  - HEPATIC ENZYME INCREASED [None]
  - NAUSEA [None]
  - VOMITING [None]
